FAERS Safety Report 6081376-9 (Version None)
Quarter: 2009Q1

REPORT INFORMATION
  Report Type: 
  Country: None (occurrence: None)
  Receive Date: 20090218
  Receipt Date: 20090210
  Transmission Date: 20090719
  Serious: Yes (Other)
  Sender: FDA-Public Use
  Company Number: US-JNJFOC-20090203165

PATIENT
  Age: 75 Year
  Sex: Female
  Weight: 53.07 kg

DRUGS (3)
  1. SIMPLY SLEEP NIGHTTIME [Suspect]
     Indication: INSOMNIA
     Route: 048
  2. LEVOTHYROXINE SODIUM [Concomitant]
     Indication: THYROID DISORDER
  3. PROZAC [Concomitant]
     Indication: DEPRESSION

REACTIONS (2)
  - HALLUCINATION [None]
  - POOR QUALITY SLEEP [None]
